FAERS Safety Report 17604343 (Version 1)
Quarter: 2020Q1

REPORT INFORMATION
  Report Type: Spontaneous
  Country: US (occurrence: US)
  Receive Date: 20200331
  Receipt Date: 20200331
  Transmission Date: 20200409
  Serious: Yes (Other)
  Sender: FDA-Public Use
  Company Number: US-PFIZER INC-2020126904

PATIENT
  Age: 72 Year
  Sex: Female
  Weight: 68.4 kg

DRUGS (1)
  1. LYRICA [Suspect]
     Active Substance: PREGABALIN
     Indication: FIBROMYALGIA
     Dosage: 100 MG, UNK

REACTIONS (7)
  - Therapeutic response unexpected [Unknown]
  - Diplopia [Unknown]
  - Irritable bowel syndrome [Unknown]
  - Drug dependence [Unknown]
  - Pre-existing condition improved [Unknown]
  - Dizziness [Unknown]
  - Erythema [Unknown]
